FAERS Safety Report 24267701 (Version 4)
Quarter: 2024Q3

REPORT INFORMATION
  Report Type: Spontaneous
  Country: US (occurrence: US)
  Receive Date: 20240830
  Receipt Date: 20240909
  Transmission Date: 20241017
  Serious: Yes (Life-Threatening, Hospitalization)
  Sender: ROCHE
  Company Number: US-ROCHE-10000062101

PATIENT
  Age: 17 Year
  Sex: Female
  Weight: 68.89 kg

DRUGS (6)
  1. MYCOPHENOLATE MOFETIL [Suspect]
     Active Substance: MYCOPHENOLATE MOFETIL
     Indication: Juvenile idiopathic arthritis
     Route: 065
  2. MYCOPHENOLATE MOFETIL [Suspect]
     Active Substance: MYCOPHENOLATE MOFETIL
     Indication: Still^s disease
  3. JAKAFI [Suspect]
     Active Substance: RUXOLITINIB
     Indication: Juvenile idiopathic arthritis
     Route: 048
     Dates: start: 202401
  4. JAKAFI [Suspect]
     Active Substance: RUXOLITINIB
     Indication: Still^s disease
  5. ILARIS [Interacting]
     Active Substance: CANAKINUMAB
     Indication: Juvenile idiopathic arthritis
     Route: 065
  6. ILARIS [Interacting]
     Active Substance: CANAKINUMAB
     Indication: Still^s disease

REACTIONS (16)
  - Off label use [Unknown]
  - Haemophagocytic lymphohistiocytosis [Unknown]
  - Multiple organ dysfunction syndrome [Unknown]
  - Ill-defined disorder [Unknown]
  - Still^s disease [Unknown]
  - Autoinflammatory disease [Unknown]
  - Lung disorder [Unknown]
  - Still^s disease [Unknown]
  - Product prescribing error [Unknown]
  - Back pain [Unknown]
  - Fatigue [Unknown]
  - Epistaxis [Unknown]
  - Headache [Unknown]
  - Drug interaction [Unknown]
  - Prescribed overdose [Unknown]
  - Off label use [Unknown]
